FAERS Safety Report 4399451-3 (Version None)
Quarter: 2004Q3

REPORT INFORMATION
  Report Type: 
  Country: None (occurrence: None)
  Receive Date: 20040712
  Receipt Date: 20040702
  Transmission Date: 20050211
  Serious: Yes (Other)
  Sender: FDA-Public Use
  Company Number: 204469

PATIENT
  Age: 32 Year
  Sex: Female
  Weight: 72 kg

DRUGS (12)
  1. XOLAIR [Suspect]
     Indication: ASTHMA
     Dosage: 150 MG, Q2W, SUBCUTANEOUS
     Route: 058
     Dates: start: 20031230, end: 20040127
  2. ALBUTEROL (ALBUTEROL SULFATE, ALBUTEROL) [Concomitant]
  3. XOPENEX (LEVALBUTROL HYDROCHLORIDE) [Concomitant]
  4. PULMICORT [Concomitant]
  5. MONTELUKAST (MONTELUKAST SODIUM) [Concomitant]
  6. CLARITIN [Concomitant]
  7. ZYRTEC [Concomitant]
  8. FORADIL [Concomitant]
  9. ASTELIN [Concomitant]
  10. TOPOMAX (TOPIRAMATE) [Concomitant]
  11. AMITRIPTYLINE HCL [Concomitant]
  12. RHINCORT AQUA IBUDESONIDE) [Concomitant]

REACTIONS (5)
  - ANAPHYLACTIC REACTION [None]
  - ASTHMA [None]
  - CONDITION AGGRAVATED [None]
  - PHARMACEUTICAL PRODUCT COMPLAINT [None]
  - SINUSITIS [None]
